FAERS Safety Report 6486717-6 (Version None)
Quarter: 2009Q4

REPORT INFORMATION
  Report Type: 
  Country: None (occurrence: None)
  Receive Date: 20091210
  Receipt Date: 20091203
  Transmission Date: 20100525
  Serious: Yes (Other)
  Sender: FDA-Public Use
  Company Number: US-BAYER-200924898NA

PATIENT
  Age: 26 Year
  Sex: Female

DRUGS (1)
  1. MIRENA [Suspect]
     Indication: DRUG USE FOR UNKNOWN INDICATION
     Dosage: CONTINUOUS
     Route: 015
     Dates: start: 20050101

REACTIONS (5)
  - ABDOMINAL PAIN [None]
  - ABDOMINAL PAIN LOWER [None]
  - DEVICE DISLOCATION [None]
  - METRORRHAGIA [None]
  - VAGINITIS BACTERIAL [None]
